FAERS Safety Report 10775761 (Version 2)
Quarter: 2015Q1

REPORT INFORMATION
  Report Type: Spontaneous
  Country: IL (occurrence: None)
  Receive Date: 20150205
  Receipt Date: 20150212
  Transmission Date: 20150721
  Serious: Yes (Hospitalization)
  Sender: FDA-Public Use
  Company Number: 8007136

PATIENT
  Age: 77 Year
  Sex: Female

DRUGS (4)
  1. LOSEC [Concomitant]
     Active Substance: OMEPRAZOLE
  2. EUTHYROX (LEVOTHYROXINE SODIUM) LEVOTHYROXINE SODIUM) [Suspect]
     Active Substance: LEVOTHYROXINE SODIUM
     Indication: HYPOTHYROIDISM
     Route: 048
     Dates: end: 20150127
  3. ENALAPRIL [Concomitant]
     Active Substance: ENALAPRIL
  4. NORMITEN (ATENOLOL) [Concomitant]

REACTIONS (7)
  - Palpitations [None]
  - Atrial fibrillation [None]
  - Malaise [None]
  - Asthenia [None]
  - Hypersensitivity [None]
  - Drug dose omission [None]
  - Blood thyroid stimulating hormone increased [None]
